FAERS Safety Report 18959869 (Version 1)
Quarter: 2021Q1

REPORT INFORMATION
  Report Type: Spontaneous
  Country: FR (occurrence: FR)
  Receive Date: 20210302
  Receipt Date: 20210302
  Transmission Date: 20210420
  Serious: Yes (Other)
  Sender: FDA-Public Use
  Company Number: FR-JAZZ-2021-FR-003736

PATIENT

DRUGS (6)
  1. ATTENTIN [DEXAMFETAMINE SULFATE] [Suspect]
     Active Substance: DEXTROAMPHETAMINE SULFATE
     Indication: NARCOLEPSY
     Dosage: 50 MILLIGRAM, QD
     Route: 048
     Dates: start: 20170123
  2. BISOPROLOL [Concomitant]
     Active Substance: BISOPROLOL
     Indication: PRODUCT USED FOR UNKNOWN INDICATION
     Dosage: UNK
     Dates: start: 20150902
  3. XYREM [Suspect]
     Active Substance: SODIUM OXYBATE
     Indication: NARCOLEPSY
     Dosage: 2.25 MILLIGRAM, BID
     Route: 048
     Dates: start: 20200513
  4. XYREM [Suspect]
     Active Substance: SODIUM OXYBATE
     Indication: CATAPLEXY
  5. ATTENTIN [DEXAMFETAMINE SULFATE] [Suspect]
     Active Substance: DEXTROAMPHETAMINE SULFATE
     Indication: CATAPLEXY
  6. CAFFEINE. [Suspect]
     Active Substance: CAFFEINE
     Indication: PRODUCT USED FOR UNKNOWN INDICATION

REACTIONS (1)
  - Sinus tachycardia [Not Recovered/Not Resolved]
